FAERS Safety Report 22692146 (Version 3)
Quarter: 2024Q4

REPORT INFORMATION
  Report Type: Spontaneous
  Country: PL (occurrence: PL)
  Receive Date: 20230711
  Receipt Date: 20241016
  Transmission Date: 20250114
  Serious: Yes (Other)
  Sender: MYLAN
  Company Number: PL-002147023-NVSC2023PL139933

PATIENT
  Age: 60 Year
  Sex: Female

DRUGS (5)
  1. ZOLEDRONIC ACID [Suspect]
     Active Substance: ZOLEDRONIC ACID
     Indication: Breast cancer
     Dosage: UNK, QD
     Route: 042
  2. ZOLEDRONIC ACID [Suspect]
     Active Substance: ZOLEDRONIC ACID
     Dosage: 4 MG EVERY 12 WEEKS
     Route: 042
     Dates: start: 20240625
  3. LETROZOLE [Suspect]
     Active Substance: LETROZOLE
     Indication: Product used for unknown indication
     Dosage: 2.5 MG, QD (1X1 TABLE FOR DAYS 1-28)
     Route: 065
  4. RIBOCICLIB [Suspect]
     Active Substance: RIBOCICLIB
     Indication: Breast cancer
     Dosage: 600 MG QD (3 TABLES/ ONCE A DAY/ FOR 21 DAYS)
     Route: 065
     Dates: start: 20200410
  5. RIBOCICLIB [Suspect]
     Active Substance: RIBOCICLIB
     Dosage: 400 MG, QD (1 X 400 MG)
     Route: 065
     Dates: start: 202008

REACTIONS (4)
  - Metastases to bone [Unknown]
  - Neutropenia [Unknown]
  - Periprostatic venous plexus dilatation [Unknown]
  - Haematotoxicity [Unknown]

NARRATIVE: CASE EVENT DATE: 20200701
